FAERS Safety Report 7752999-3 (Version None)
Quarter: 2011Q3

REPORT INFORMATION
  Report Type: 
  Country: None (occurrence: None)
  Receive Date: 20110915
  Receipt Date: 20110906
  Transmission Date: 20111222
  Serious: Yes (Hospitalization, Other)
  Sender: FDA-Public Use
  Company Number: US-BAYER-2011-003502

PATIENT
  Age: 26 Year
  Sex: Female
  Weight: 104 kg

DRUGS (7)
  1. RISPERDAL [Concomitant]
     Dosage: UNK
     Dates: start: 20080101
  2. HYDROCHLOROTHIAZIDE [Concomitant]
  3. OXYCODONE/HYDROCODONE [Concomitant]
  4. PROMETHAZINE [Concomitant]
  5. PENICILLIN [Concomitant]
  6. DOXYCYCLINE [Concomitant]
  7. YASMIN [Suspect]
     Indication: PRODUCT USED FOR UNKNOWN INDICATION
     Dosage: UNK
     Route: 048
     Dates: start: 20070101, end: 20080201

REACTIONS (7)
  - PAIN [None]
  - EMOTIONAL DISTRESS [None]
  - CHOLELITHIASIS [None]
  - MENTAL DISORDER [None]
  - CHOLECYSTITIS CHRONIC [None]
  - INJURY [None]
  - ANXIETY [None]
